FAERS Safety Report 7548848-9 (Version None)
Quarter: 2011Q2

REPORT INFORMATION
  Report Type: 
  Country: None (occurrence: None)
  Receive Date: 20110615
  Receipt Date: 20110609
  Transmission Date: 20111010
  Serious: Yes (Death)
  Sender: FDA-Public Use
  Company Number: AT-PFIZER INC-2011126880

PATIENT
  Sex: Male
  Weight: 130 kg

DRUGS (3)
  1. ZYVOX [Concomitant]
     Dosage: 600 MG, 2X/DAY
  2. TAZONAM [Concomitant]
  3. TYGACIL [Suspect]
     Indication: ENTEROCOCCAL INFECTION
     Dosage: 50 MG, 2X/DAY

REACTIONS (1)
  - HEPATIC FAILURE [None]
